FAERS Safety Report 7831659-4 (Version None)
Quarter: 2011Q4

REPORT INFORMATION
  Report Type: 
  Country: None (occurrence: None)
  Receive Date: 20111021
  Receipt Date: 20111017
  Transmission Date: 20120403
  Serious: Yes (Other)
  Sender: FDA-Public Use
  Company Number: PHEH2011US04182

PATIENT
  Sex: Female

DRUGS (12)
  1. ACIPHEX [Concomitant]
     Dosage: 20 MG, QD
  2. DOXEPIN [Concomitant]
     Dosage: 200 MG, QD
  3. PREMARIN [Concomitant]
     Dosage: 1.25 MG, QD
  4. GILENYA [Suspect]
     Indication: MULTIPLE SCLEROSIS
     Dosage: 0.5 MG, QD
     Route: 048
     Dates: start: 20110909
  5. PRAMIPEXOLE DIHYDROCHLORIDE [Concomitant]
     Dosage: 0.5 MG, BID
  6. EFFIENT [Concomitant]
     Dosage: 10 MG, QD
  7. LISINOPRIL [Suspect]
     Dosage: UNK UKN, QD
  8. METOPROLOL TARTRATE [Concomitant]
     Dosage: 25 MG, BID
  9. SIMVASTATIN [Suspect]
     Dosage: 40 MG, UNK
  10. VESICARE [Concomitant]
     Dosage: 5 MG, QD
  11. PROVIGIL [Concomitant]
     Dosage: 200 MG, BID
  12. PIROXICAM [Concomitant]
     Dosage: 20 MG, QD

REACTIONS (5)
  - PRURITUS [None]
  - MYOCARDIAL INFARCTION [None]
  - URTICARIA [None]
  - ERYTHEMA [None]
  - ALOPECIA [None]
